FAERS Safety Report 7054493-4 (Version None)
Quarter: 2010Q4

REPORT INFORMATION
  Report Type: 
  Country: None (occurrence: None)
  Receive Date: 20101020
  Receipt Date: 20101012
  Transmission Date: 20110411
  Serious: Yes (Hospitalization)
  Sender: FDA-Public Use
  Company Number: JP-PFIZER INC-2010098000

PATIENT
  Age: 11 Year
  Sex: Male

DRUGS (45)
  1. ATARAX [Suspect]
     Dosage: 25 MG, UID/QD
     Route: 041
     Dates: start: 20100709, end: 20100709
  2. CEFAZOLIN SODIUM [Suspect]
     Dosage: 500 MG, 2X/DAY
     Route: 041
     Dates: start: 20100622, end: 20100624
  3. GASTER [Suspect]
     Dosage: 15 MG, UNKNOWN/D
     Route: 048
     Dates: start: 20100626, end: 20100715
  4. GASTER [Suspect]
     Dosage: 8 MG,
     Route: 041
     Dates: start: 20100617, end: 20100626
  5. MIDAZOLAM [Suspect]
     Dosage: 10 MG, UID/QD
     Route: 041
     Dates: start: 20100617, end: 20100709
  6. PHENOBARBITAL [Suspect]
     Dosage: 50 MG, 2X/DAY
     Route: 048
     Dates: start: 20100622, end: 20100709
  7. CERCINE [Suspect]
     Dosage: 5 MG
     Route: 048
     Dates: start: 20100622, end: 20100701
  8. CERCINE [Suspect]
     Dosage: 4 ML
     Route: 048
     Dates: start: 20100702, end: 20100722
  9. VICCILLIN [Suspect]
     Dosage: 375 MG, QID
     Dates: start: 20100715, end: 20100716
  10. TAKEPRON [Suspect]
     Dosage: 7.5 MG, 2X/DAY
     Route: 048
     Dates: start: 20100628, end: 20100728
  11. ROCEPHIN [Suspect]
     Indication: INFECTION
     Dosage: 2000MG, UID/QD
     Route: 041
     Dates: start: 20100630, end: 20100707
  12. BIOFERMIN R [Suspect]
     Dosage: 1 G
     Route: 048
     Dates: start: 20100711, end: 20100718
  13. RISPERDAL [Suspect]
     Dosage: 0.3 ML,UID/QD
     Route: 048
     Dates: start: 20100702, end: 20100714
  14. CALONAL [Suspect]
     Indication: PYREXIA
     Dosage: 300 MG, UID/QD
     Route: 048
     Dates: start: 20100627, end: 20100716
  15. MIDAZOLAM [Suspect]
     Dosage: 10 MG UID/QD
     Route: 041
     Dates: start: 20100621, end: 20100621
  16. CLINDAMYCIN PHOSPHATE [Suspect]
     Dosage: 100 MG, 3X/DAY
     Route: 041
     Dates: start: 20100608, end: 20100710
  17. PIPERACILLIN SODIUM [Suspect]
     Dosage: 375 MG, QID
     Route: 041
     Dates: start: 20100715, end: 20100716
  18. BIOFERMIN [Suspect]
     Dosage: 1 G
     Route: 048
     Dates: start: 20100711, end: 20100718
  19. MORPHINE HYDROCHLORIDE [Suspect]
     Dosage: 2 MG/KG UID/QD
     Route: 041
     Dates: start: 20100621, end: 20100709
  20. LASIX [Suspect]
     Dosage: 2.5 MG QID
     Route: 048
     Dates: start: 20100626, end: 20100706
  21. ALDACTONE [Suspect]
     Dosage: 2.5 MG QID
     Route: 048
     Dates: start: 20100626, end: 20100706
  22. LACTOBACILLUS CASEI [Suspect]
     Dosage: 500 MG
     Route: 048
     Dates: start: 20100702, end: 20100709
  23. DEPAS [Suspect]
     Dosage: 1 DF, UID/QD
     Route: 048
     Dates: start: 20100701, end: 20100701
  24. TRICLORYL [Suspect]
     Dosage: 20 ML, UID/QD
     Route: 048
     Dates: start: 20100628, end: 20100705
  25. LAXOBERON [Suspect]
     Dosage: 10 ML, UID/QD
     Route: 048
     Dates: start: 20100620, end: 20100620
  26. OMEPRAL [Suspect]
     Dosage: 7.5 MG, 2X/DAY
     Route: 041
     Dates: start: 20100716, end: 20100721
  27. HEPARIN [Suspect]
     Dosage: 5 IU/KG, UID/QD
     Route: 041
     Dates: start: 20100808, end: 20100812
  28. HEPARIN SODIUM [Suspect]
     Dosage: 2 DF, UID/QD
     Route: 041
     Dates: start: 20100617
  29. GLYCEOL [Suspect]
     Dosage: 200 ML
     Route: 041
     Dates: start: 20100617, end: 20100618
  30. DECADRON [Suspect]
     Dosage: 2 MG
     Route: 041
     Dates: start: 20100617, end: 20100622
  31. ATROPINE SULFATE [Suspect]
     Dosage: 0.5 MG, UID/QD
     Route: 041
     Dates: start: 20100617, end: 20100622
  32. EPINEPHRINE [Suspect]
     Dosage: 10 MG, UID/QD
     Route: 041
     Dates: start: 20100621, end: 20100621
  33. CALCICOL [Suspect]
     Dosage: 10 ML, UID/QD
     Route: 041
     Dates: start: 20100621, end: 20100621
  34. FENTANYL [Suspect]
     Dosage: UNK
     Route: 041
     Dates: start: 20100621, end: 20100708
  35. ULTIVA [Suspect]
     Dosage: UNK
     Route: 041
     Dates: start: 20100621, end: 20100708
  36. NICARPINE [Suspect]
     Dosage: UNK UG/KG, UNK
     Route: 041
  37. DEXMEDETOMIDINE HYDROCHLORIDE [Suspect]
     Dosage: UNK
     Route: 041
     Dates: start: 20100704, end: 20100705
  38. ROCURONIUM BROMIDE [Suspect]
     Dosage: 50 MG, UID/QD
     Route: 041
     Dates: start: 20100617, end: 20100706
  39. XYLOCAINE [Suspect]
     Dosage: 10 ML, UID/QD
     Route: 041
     Dates: start: 20100621, end: 20100709
  40. PANTHENOL [Suspect]
     Dosage: 25 MG, 2X/DAY
     Route: 041
     Dates: start: 20100604, end: 20100705
  41. ANHIBA [Suspect]
     Dosage: UNK
     Route: 054
     Dates: start: 20100630, end: 20100716
  42. FLURBIPROFEN [Suspect]
     Dosage: 3.5 ML, UID/QD
     Route: 041
     Dates: start: 20100709, end: 20100709
  43. TARIVID OPHTHALMIC [Suspect]
     Dosage: UNK
     Route: 047
     Dates: start: 20100728, end: 20100729
  44. HYALEIN [Suspect]
     Dosage: UNK
     Route: 047
     Dates: start: 20100723, end: 20100821
  45. GLYCERIN [Suspect]
     Indication: CONSTIPATION
     Dosage: UNK
     Route: 054
     Dates: start: 20100627

REACTIONS (1)
  - DRUG RASH WITH EOSINOPHILIA AND SYSTEMIC SYMPTOMS [None]
